FAERS Safety Report 4270815-1 (Version None)
Quarter: 2004Q1

REPORT INFORMATION
  Report Type: 
  Country: None (occurrence: None)
  Receive Date: 20040114
  Receipt Date: 20020828
  Transmission Date: 20041129
  Serious: Yes (Hospitalization)
  Sender: FDA-Public Use
  Company Number: US-BRISTOL-MYERS SQUIBB COMPANY-12016440

PATIENT
  Age: 60 Year
  Sex: Female

DRUGS (12)
  1. PRAVASTATIN SODIUM [Suspect]
     Dosage: THERAPY INTERRUPTED; LAST DOSE PRIOR TO EVENT: 22-JUL-2002; RESTARTED 27-AUG-2002
     Route: 048
     Dates: start: 20010927
  2. PLACEBO [Suspect]
     Dosage: THERAPY INTERRUPTED; LAST DOSE PRIOR TO EVENT: 22-JUL-2002
     Route: 048
     Dates: start: 20011012
  3. TEQUIN [Suspect]
     Indication: CHRONIC OBSTRUCTIVE AIRWAYS DISEASE
     Dates: start: 20020709, end: 20020715
  4. PREDNISONE [Concomitant]
     Indication: CHRONIC OBSTRUCTIVE AIRWAYS DISEASE
     Dates: start: 20020709
  5. NOVASEN [Concomitant]
     Route: 048
     Dates: start: 19990901
  6. MONOCOR [Concomitant]
     Route: 048
     Dates: start: 20020424
  7. PLAVIX [Concomitant]
     Route: 048
     Dates: start: 20010608
  8. ADALAT [Concomitant]
     Route: 048
     Dates: start: 20020523
  9. ATIVAN [Concomitant]
     Route: 048
     Dates: start: 20020701
  10. PLAQUENIL [Concomitant]
     Route: 048
     Dates: start: 20020304
  11. BISACODYL [Concomitant]
     Route: 048
     Dates: start: 20020601
  12. NITROGLYCERIN [Concomitant]
     Route: 050
     Dates: start: 20011012

REACTIONS (7)
  - BACILLUS INFECTION [None]
  - BACTERIAL INFECTION [None]
  - CHRONIC OBSTRUCTIVE AIRWAYS DISEASE EXACERBATED [None]
  - HAEMOPHILUS INFECTION [None]
  - MEDICATION ERROR [None]
  - PNEUMONIA [None]
  - SUPERINFECTION [None]
